FAERS Safety Report 8814467 (Version 2)
Quarter: 2012Q4

REPORT INFORMATION
  Report Type: 
  Country: DE (occurrence: DE)
  Receive Date: 20120928
  Receipt Date: 20121115
  Transmission Date: 20130627
  Serious: Yes (Life-Threatening, Other)
  Sender: FDA-Public Use
  Company Number: DE-PFIZER INC-2012238416

PATIENT
  Age: 75 Year
  Sex: Male
  Weight: 90 kg

DRUGS (10)
  1. SORTIS [Suspect]
     Indication: CORONARY HEART DISEASE
     Dosage: 20 mg, UNK
     Route: 048
  2. SORTIS [Suspect]
     Indication: LIPIDS NOS
  3. MARCUMAR [Concomitant]
     Dosage: UNK
  4. AMLODIPIN [Concomitant]
     Dosage: 5 mg, UNK
  5. ASS [Concomitant]
     Indication: CORONARY HEART DISEASE
     Dosage: 100 mg, UNK
     Route: 048
  6. ASS [Concomitant]
     Indication: LIPIDS NOS
  7. METOPROLOL [Concomitant]
     Indication: CORONARY HEART DISEASE
     Dosage: 100 mg, UNK
     Route: 048
  8. METOPROLOL [Concomitant]
     Indication: LIPIDS NOS
  9. CANDESARTAN [Concomitant]
     Indication: CORONARY HEART DISEASE
     Dosage: 16 mg, UNK
     Route: 048
  10. CANDESARTAN [Concomitant]
     Indication: LIPIDS NOS

REACTIONS (4)
  - Amyotrophic lateral sclerosis [Not Recovered/Not Resolved]
  - Blood creatine phosphokinase increased [Unknown]
  - Blood cholesterol increased [Unknown]
  - Myalgia [Unknown]
